FAERS Safety Report 10381174 (Version 1)
Quarter: 2014Q3

REPORT INFORMATION
  Report Type: Spontaneous
  Country: IE (occurrence: IE)
  Receive Date: 20140813
  Receipt Date: 20140813
  Transmission Date: 20150326
  Serious: Yes (Death)
  Sender: FDA-Public Use
  Company Number: IE-AMGEN-IRLSP2014061303

PATIENT
  Age: 75 Year
  Sex: Male

DRUGS (12)
  1. DIOCTYL [Concomitant]
     Dosage: UNK
  2. PALLADONE [Concomitant]
     Active Substance: HYDROMORPHONE HYDROCHLORIDE
     Dosage: UNK
  3. FOLIC ACID. [Concomitant]
     Active Substance: FOLIC ACID
     Dosage: UNK
  4. LYRICA [Concomitant]
     Active Substance: PREGABALIN
     Dosage: UNK
  5. LANZOL [Concomitant]
     Dosage: UNK
  6. MOTILIUM [Concomitant]
     Active Substance: DOMPERIDONE
     Dosage: UNK
  7. EFFENTORA [Concomitant]
     Active Substance: FENTANYL CITRATE
     Dosage: UNK
  8. MELFEN                             /00044201/ [Concomitant]
     Dosage: UNK
  9. NEULASTA [Suspect]
     Active Substance: PEGFILGRASTIM
     Indication: NON-SMALL CELL LUNG CANCER
     Dosage: 6MG/0.6MLS, POST CHEMO EVERY THREE WEEKS
     Route: 058
     Dates: start: 20131122
  10. DOCETAXEL [Concomitant]
     Active Substance: DOCETAXEL
     Dosage: UNK
  11. PANADOL                            /00020001/ [Concomitant]
     Dosage: UNK
  12. AMITRIPTYLINE [Concomitant]
     Active Substance: AMITRIPTYLINE
     Dosage: UNK

REACTIONS (1)
  - Death [Fatal]
